FAERS Safety Report 9321922 (Version 1)
Quarter: 2013Q2

REPORT INFORMATION
  Report Type: Spontaneous
  Country: DE (occurrence: DE)
  Receive Date: 20130531
  Receipt Date: 20130531
  Transmission Date: 20140414
  Serious: Yes (Other)
  Sender: FDA-Public Use
  Company Number: DE-PFIZER INC-2013161696

PATIENT
  Sex: 0

DRUGS (2)
  1. ZYVOXID [Suspect]
     Indication: PNEUMONIA STAPHYLOCOCCAL
     Dosage: UNK
  2. CLARITHROMYCIN [Suspect]
     Indication: PNEUMONIA STAPHYLOCOCCAL
     Dosage: UNK

REACTIONS (3)
  - Septic shock [Unknown]
  - Aspartate aminotransferase increased [Unknown]
  - Blood lactate dehydrogenase increased [Unknown]
